FAERS Safety Report 10043468 (Version 1)
Quarter: 2014Q1

REPORT INFORMATION
  Report Type: Spontaneous
  Country: US (occurrence: None)
  Receive Date: 20140327
  Receipt Date: 20140327
  Transmission Date: 20141002
  Serious: No
  Sender: FDA-Public Use
  Company Number: None

PATIENT
  Age: 45 Year
  Sex: Male
  Weight: 90.72 kg

DRUGS (2)
  1. HUMALOG KWIKPEN [Suspect]
     Indication: TYPE 1 DIABETES MELLITUS
  2. LANTUS INSULIN [Concomitant]

REACTIONS (2)
  - Wrong drug administered [None]
  - Product colour issue [None]
